FAERS Safety Report 23933747 (Version 1)
Quarter: 2024Q2

REPORT INFORMATION
  Report Type: Report from Study
  Country: US (occurrence: US)
  Receive Date: 20240603
  Receipt Date: 20240603
  Transmission Date: 20240716
  Serious: Yes (Other)
  Sender: FDA-Public Use
  Company Number: US-PFIZER INC-202400181801

PATIENT
  Age: 68 Year
  Sex: Male

DRUGS (1)
  1. BRAFTOVI [Suspect]
     Active Substance: ENCORAFENIB
     Dosage: 75 MG CAPSULE - 4 CAPSULES (300 MG) DAILY BY MOUTH
     Route: 048
     Dates: start: 20240507

REACTIONS (3)
  - Vomiting [Unknown]
  - Dehydration [Unknown]
  - Pain [Unknown]
